FAERS Safety Report 23859089 (Version 2)
Quarter: 2024Q2

REPORT INFORMATION
  Report Type: Spontaneous
  Country: US (occurrence: US)
  Receive Date: 20240515
  Receipt Date: 20240606
  Transmission Date: 20240716
  Serious: Yes (Other)
  Sender: FDA-Public Use
  Company Number: US-MYLANLABS-2024M1043037

PATIENT
  Age: 64 Year
  Sex: Female
  Weight: 179 kg

DRUGS (11)
  1. CLOZAPINE [Suspect]
     Active Substance: CLOZAPINE
     Indication: Schizophrenia
     Dosage: 12.5 MILLIGRAM (QMS)
     Route: 048
     Dates: start: 20240318
  2. CLOZAPINE [Suspect]
     Active Substance: CLOZAPINE
     Dosage: 275 MILLIGRAM (QMS)
     Route: 048
     Dates: start: 20240423
  3. CLOZAPINE [Suspect]
     Active Substance: CLOZAPINE
     Dosage: 225 MILLIGRAM (QMS)
     Route: 048
     Dates: start: 20240507
  4. CLOZAPINE [Suspect]
     Active Substance: CLOZAPINE
     Dosage: UNK
     Route: 048
     Dates: end: 20240508
  5. LOXAPINE [Concomitant]
     Active Substance: LOXAPINE
     Dosage: UNK
     Route: 065
  6. NYSTOP [Concomitant]
     Active Substance: NYSTATIN
     Dosage: 100.00 UNITES PER GRAM POWDER
     Route: 065
  7. ARTANE [Concomitant]
     Active Substance: TRIHEXYPHENIDYL HYDROCHLORIDE
     Dosage: UNK
     Route: 065
  8. VITAMIN D3 [Concomitant]
     Active Substance: CHOLECALCIFEROL
     Dosage: UNK
     Route: 065
  9. ZYRTEC [Concomitant]
     Active Substance: CETIRIZINE HYDROCHLORIDE
     Dosage: UNK
     Route: 065
  10. HYDROCORTISONE [Concomitant]
     Active Substance: HYDROCORTISONE
     Dosage: UNK
     Route: 065
  11. POLYETHYLENE GLYCOL [Concomitant]
     Active Substance: POLYETHYLENE GLYCOL
     Dosage: UNK (0.3 - 0.4 PERCENT)
     Route: 065

REACTIONS (2)
  - Neutropenia [Not Recovered/Not Resolved]
  - Leukopenia [Not Recovered/Not Resolved]

NARRATIVE: CASE EVENT DATE: 20240507
